FAERS Safety Report 6894701-3 (Version None)
Quarter: 2010Q3

REPORT INFORMATION
  Report Type: 
  Country: None (occurrence: None)
  Receive Date: 20100728
  Receipt Date: 20100716
  Transmission Date: 20110219
  Serious: Yes (Other)
  Sender: FDA-Public Use
  Company Number: 2010MA000979

PATIENT
  Age: 79 Year
  Sex: Male

DRUGS (7)
  1. AMLODIPINE BESYLATE [Suspect]
     Indication: HYPERTENSION
     Dosage: 5 MG;PO
     Route: 048
     Dates: start: 20100215, end: 20100218
  2. LANSOPRAZOLE [Concomitant]
  3. ASACOL [Concomitant]
  4. RAMIPRIL [Concomitant]
  5. SIMVASTATIN [Concomitant]
  6. ACEBUTOLOL [Concomitant]
  7. RAMIPRIL [Concomitant]

REACTIONS (5)
  - ABDOMINAL PAIN [None]
  - FATIGUE [None]
  - HEPATITIS [None]
  - LETHARGY [None]
  - REFUSAL OF TREATMENT BY PATIENT [None]
